FAERS Safety Report 7718638-2 (Version None)
Quarter: 2011Q3

REPORT INFORMATION
  Report Type: 
  Country: None (occurrence: None)
  Receive Date: 20110824
  Receipt Date: 20110810
  Transmission Date: 20111222
  Serious: Yes (Other)
  Sender: FDA-Public Use
  Company Number: 2011SP038251

PATIENT
  Age: 26 Year
  Sex: Female
  Weight: 58 kg

DRUGS (2)
  1. ISOTRETINOIN [Concomitant]
  2. IMPLANON [Suspect]
     Indication: CONTRACEPTION
     Dosage: 68 MG;SBDE
     Route: 059
     Dates: start: 20110101

REACTIONS (6)
  - AMENORRHOEA [None]
  - CONDITION AGGRAVATED [None]
  - ENCAPSULATION REACTION [None]
  - IMPLANT SITE REACTION [None]
  - COMPLICATION OF DEVICE REMOVAL [None]
  - FUNGAL SKIN INFECTION [None]
